FAERS Safety Report 19892053 (Version 1)
Quarter: 2021Q3

REPORT INFORMATION
  Report Type: Spontaneous
  Country: JP (occurrence: JP)
  Receive Date: 20210929
  Receipt Date: 20210929
  Transmission Date: 20211014
  Serious: Yes (Hospitalization, Other)
  Sender: FDA-Public Use
  Company Number: JP-SUN PHARMACEUTICAL INDUSTRIES LTD-2021R1-312398

PATIENT
  Age: 21 Year
  Sex: Female

DRUGS (3)
  1. CLONAZEPAM. [Suspect]
     Active Substance: CLONAZEPAM
     Indication: IDIOPATHIC GENERALISED EPILEPSY
     Dosage: 15 MILLIGRAM, UNK
     Route: 048
  2. LAMOTRIGINE. [Suspect]
     Active Substance: LAMOTRIGINE
     Indication: IDIOPATHIC GENERALISED EPILEPSY
     Dosage: 15.6 GRAM, UNK
     Route: 048
  3. LEVETIRACETAM. [Suspect]
     Active Substance: LEVETIRACETAM
     Indication: IDIOPATHIC GENERALISED EPILEPSY
     Dosage: 14 GRAM, UNK
     Route: 048

REACTIONS (6)
  - Toxicity to various agents [Unknown]
  - Coma [Recovered/Resolved]
  - Electrocardiogram QT prolonged [Unknown]
  - Coma scale abnormal [Recovered/Resolved]
  - Sinus tachycardia [Unknown]
  - Depressed level of consciousness [Recovered/Resolved]
